FAERS Safety Report 9319641 (Version 2)
Quarter: 2014Q2

REPORT INFORMATION
  Report Type: Spontaneous
  Country: US (occurrence: US)
  Receive Date: 20130530
  Receipt Date: 20140530
  Transmission Date: 20141212
  Serious: No
  Sender: FDA-Public Use
  Company Number: US-GLAXOSMITHKLINE-A1018095A

PATIENT
  Age: 35 Year
  Sex: Female

DRUGS (4)
  1. FLOLAN [Suspect]
     Indication: COR PULMONALE CHRONIC
     Dosage: 3NGKM CONTINUOUS
     Route: 042
     Dates: start: 20130313
  2. COUMADIN [Concomitant]
  3. LETAIRIS [Concomitant]
  4. ADCIRCA [Concomitant]

REACTIONS (12)
  - Limb discomfort [Recovering/Resolving]
  - Muscle spasms [Recovering/Resolving]
  - Peripheral swelling [Recovering/Resolving]
  - Swelling face [Recovering/Resolving]
  - Catheter site haemorrhage [Recovering/Resolving]
  - Nasal congestion [Recovering/Resolving]
  - Nasal discharge discolouration [Recovering/Resolving]
  - Paranasal sinus discomfort [Recovering/Resolving]
  - Catheter site erythema [Unknown]
  - Infusion site pain [Unknown]
  - Application site papules [Unknown]
  - Skin irritation [Unknown]
